FAERS Safety Report 5499710-7 (Version None)
Quarter: 2007Q4

REPORT INFORMATION
  Report Type: 
  Country: None (occurrence: None)
  Receive Date: 20071026
  Receipt Date: 20071017
  Transmission Date: 20080405
  Serious: Yes (Hospitalization)
  Sender: FDA-Public Use
  Company Number: FR-ROCHE-506510

PATIENT
  Age: 25 Year
  Sex: Male
  Weight: 54.6 kg

DRUGS (10)
  1. MYCOPHENOLATE MOFETIL [Suspect]
     Route: 048
     Dates: start: 20070620
  2. MYCOPHENOLATE MOFETIL [Suspect]
     Dosage: DOSE REDUCED.
     Route: 048
     Dates: start: 20071010
  3. ROVALCYTE [Suspect]
     Indication: DRUG USE FOR UNKNOWN INDICATION
     Route: 065
     Dates: start: 20070621
  4. BACTRIM [Suspect]
     Indication: DRUG USE FOR UNKNOWN INDICATION
     Route: 065
     Dates: start: 20070621
  5. NEORAL [Concomitant]
     Dates: start: 20070620
  6. OMEPRAZOLE [Concomitant]
     Dates: start: 20070621
  7. OFLOCET [Concomitant]
     Dates: start: 20070625
  8. FOLINORAL [Concomitant]
     Dates: start: 20070625
  9. ATENOLOL [Concomitant]
     Dates: start: 20070724
  10. TRIFLUCAN [Concomitant]
     Dates: start: 20070814

REACTIONS (3)
  - RENAL FAILURE ACUTE [None]
  - TONSILLAR HYPERTROPHY [None]
  - VIRAL INFECTION [None]
